FAERS Safety Report 15929752 (Version 1)
Quarter: 2019Q1

REPORT INFORMATION
  Report Type: Spontaneous
  Country: US (occurrence: US)
  Receive Date: 20190206
  Receipt Date: 20190206
  Transmission Date: 20190417
  Serious: Yes (Other)
  Sender: FDA-Public Use
  Company Number: US-PFIZER INC-2019041792

PATIENT
  Sex: Male

DRUGS (1)
  1. FIBERCON [Suspect]
     Active Substance: CALCIUM POLYCARBOPHIL
     Dosage: UNK

REACTIONS (4)
  - Foreign body in respiratory tract [Unknown]
  - Product size issue [Unknown]
  - Choking [Unknown]
  - Product use complaint [Unknown]
